FAERS Safety Report 12312089 (Version 1)
Quarter: 2016Q2

REPORT INFORMATION
  Report Type: Spontaneous
  Country: US (occurrence: US)
  Receive Date: 20160427
  Receipt Date: 20160427
  Transmission Date: 20160815
  Serious: No
  Sender: FDA-Public Use
  Company Number: US-TEIKOKU PHARMA USA-TPU2016-00257

PATIENT
  Sex: Female
  Weight: 45.4 kg

DRUGS (4)
  1. TRAMADOL. [Suspect]
     Active Substance: TRAMADOL
     Indication: PAIN
     Route: 048
  2. LIDODERM [Suspect]
     Active Substance: LIDOCAINE
     Indication: CARPAL TUNNEL SYNDROME
     Dosage: APPLY TO PAINFUL AREA ON HANDS- 1/2 PATCH ON EACH HAND 12 HOURS ON AND 12 HOURS OFF
     Route: 061
     Dates: start: 2006
  3. LYRICA [Suspect]
     Active Substance: PREGABALIN
     Indication: PAIN
  4. OTHER MEDICATIONS [Suspect]
     Active Substance: UNSPECIFIED INGREDIENT
     Indication: PRODUCT USED FOR UNKNOWN INDICATION
     Route: 065

REACTIONS (1)
  - Gastric ulcer [Unknown]
